FAERS Safety Report 6335294-9 (Version None)
Quarter: 2009Q3

REPORT INFORMATION
  Report Type: 
  Country: None (occurrence: None)
  Receive Date: 20090831
  Receipt Date: 20090819
  Transmission Date: 20100115
  Serious: Yes (Hospitalization)
  Sender: FDA-Public Use
  Company Number: JP-NOVOPROD-290744

PATIENT
  Age: 58 Year
  Sex: Male

DRUGS (1)
  1. NOVORAPID 30 MIX CHU [Suspect]
     Indication: DIABETES MELLITUS
     Dosage: UNK

REACTIONS (4)
  - BLOOD GLUCOSE DECREASED [None]
  - HYPERAMMONAEMIA [None]
  - HYPOGLYCAEMIC ENCEPHALOPATHY [None]
  - PANCREATITIS ACUTE [None]
